FAERS Safety Report 20991353 (Version 8)
Quarter: 2023Q4

REPORT INFORMATION
  Report Type: Spontaneous
  Country: CA (occurrence: CA)
  Receive Date: 20220622
  Receipt Date: 20231115
  Transmission Date: 20240110
  Serious: Yes (Other)
  Sender: FDA-Public Use
  Company Number: CA-CELLTRION INC.-2022CA009726

PATIENT

DRUGS (6)
  1. INFLECTRA [Suspect]
     Active Substance: INFLIXIMAB-DYYB
     Indication: Ankylosing spondylitis
     Dosage: 570 MG, INDUCTION WEEK 0,2,6, THEN EVERY 6 WEEKS
     Route: 042
     Dates: start: 20220527, end: 20230331
  2. INFLECTRA [Suspect]
     Active Substance: INFLIXIMAB-DYYB
     Dosage: 570 MG, INDUCTION WEEK 0,2,6, THEN EVERY 6 WEEKS
     Route: 042
     Dates: start: 20220610
  3. INFLECTRA [Suspect]
     Active Substance: INFLIXIMAB-DYYB
     Dosage: 570 MG, INDUCTION WEEK 0,2,6, THEN EVERY 6 WEEKS
     Route: 042
     Dates: start: 20220718
  4. INFLECTRA [Suspect]
     Active Substance: INFLIXIMAB-DYYB
     Dosage: 570 MG, INDUCTION WEEK 0,2,6, THEN EVERY 6 WEEKS
     Route: 042
     Dates: start: 20220808
  5. INFLECTRA [Suspect]
     Active Substance: INFLIXIMAB-DYYB
     Dosage: 570 MG, INDUCTION WEEK 0,2,6, THEN EVERY 6 WEEKS
     Route: 042
     Dates: start: 20221011
  6. INFLECTRA [Suspect]
     Active Substance: INFLIXIMAB-DYYB
     Dosage: 570 MG, INDUCTION WEEK 0,2,6, THEN EVERY 6 WEEKS
     Route: 042
     Dates: start: 20230111

REACTIONS (7)
  - Blood potassium decreased [Recovered/Resolved]
  - Uveitis [Recovered/Resolved]
  - Cataract [Not Recovered/Not Resolved]
  - Inappropriate schedule of product administration [Unknown]
  - Chest pain [Unknown]
  - Visual impairment [Not Recovered/Not Resolved]
  - Treatment noncompliance [Unknown]

NARRATIVE: CASE EVENT DATE: 20220101
